FAERS Safety Report 9764274 (Version 1)
Quarter: 2013Q4

REPORT INFORMATION
  Report Type: Spontaneous
  Country: US (occurrence: US)
  Receive Date: 20131217
  Receipt Date: 20131217
  Transmission Date: 20140711
  Serious: No
  Sender: FDA-Public Use
  Company Number: US-009507513-1312USA006427

PATIENT
  Sex: Female

DRUGS (2)
  1. ZOCOR [Suspect]
  2. LOVASTATIN [Suspect]

REACTIONS (2)
  - Muscle spasms [Unknown]
  - Adverse event [Unknown]
